FAERS Safety Report 5337870-9 (Version None)
Quarter: 2007Q2

REPORT INFORMATION
  Report Type: 
  Country: None (occurrence: None)
  Receive Date: 20070308
  Receipt Date: 20061117
  Transmission Date: 20071010
  Serious: No
  Sender: FDA-Public Use
  Company Number: 2006-BP-12824BP

PATIENT
  Age: 57 Year
  Sex: Male

DRUGS (5)
  1. SPIRIVA [Suspect]
     Indication: CHRONIC OBSTRUCTIVE PULMONARY DISEASE
     Dosage: 18 MCG (18 MCG, 1 IN 1 D); IH
     Route: 055
     Dates: start: 20060801
  2. SPIRIVA [Suspect]
     Indication: EXPOSURE TO TOXIC AGENT
     Dosage: 18 MCG (18 MCG, 1 IN 1 D); IH
     Route: 055
     Dates: start: 20060801
  3. SPIRIVA [Suspect]
  4. XOPENEX [Concomitant]
  5. BENADRYL [Concomitant]

REACTIONS (1)
  - DYSPNOEA [None]
